FAERS Safety Report 8557597-X (Version None)
Quarter: 2012Q3

REPORT INFORMATION
  Report Type: 
  Country: None (occurrence: None)
  Receive Date: 20120801
  Receipt Date: 20120726
  Transmission Date: 20120928
  Serious: Yes (Other)
  Sender: FDA-Public Use
  Company Number: US-PFIZER INC-2012181421

PATIENT
  Sex: Female

DRUGS (10)
  1. DETROL LA [Suspect]
     Dosage: 4 MG, 1X/DAY
  2. FUROSEMIDE [Concomitant]
  3. VENTOLIN [Concomitant]
  4. LUPRON [Concomitant]
  5. DIGOXIN [Concomitant]
  6. TRAZODONE [Concomitant]
  7. SYMBICORT [Concomitant]
  8. SPIRIVA [Concomitant]
     Dosage: UNK
  9. LEVOTHYROXINE [Concomitant]
  10. CITALOPRAM [Concomitant]

REACTIONS (1)
  - MALAISE [None]
